FAERS Safety Report 8193840-7 (Version None)
Quarter: 2012Q1

REPORT INFORMATION
  Report Type: 
  Country: None (occurrence: None)
  Receive Date: 20120308
  Receipt Date: 20120229
  Transmission Date: 20120608
  Serious: Yes (Hospitalization, Other)
  Sender: FDA-Public Use
  Company Number: US-BAYER-2011-066912

PATIENT
  Age: 17 Year
  Sex: Female
  Weight: 99.773 kg

DRUGS (1)
  1. YASMIN [Suspect]
     Dosage: UNK
     Dates: start: 20051201, end: 20060101

REACTIONS (30)
  - ANHEDONIA [None]
  - NAUSEA [None]
  - SHOPLIFTING [None]
  - DEHYDRATION [None]
  - CRANIOCEREBRAL INJURY [None]
  - TRANSIENT ISCHAEMIC ATTACK [None]
  - ANXIETY [None]
  - COUGH [None]
  - ECONOMIC PROBLEM [None]
  - INTENTIONAL DRUG MISUSE [None]
  - SYNCOPE [None]
  - ANGER [None]
  - BALANCE DISORDER [None]
  - ABDOMINAL PAIN [None]
  - BRONCHITIS [None]
  - EDUCATIONAL PROBLEM [None]
  - HAEMOPTYSIS [None]
  - INJURY [None]
  - VISION BLURRED [None]
  - FAMILY STRESS [None]
  - PAIN [None]
  - FALL [None]
  - SUICIDAL IDEATION [None]
  - SUBSTANCE USE [None]
  - BIPOLAR DISORDER [None]
  - DIZZINESS [None]
  - CONFUSIONAL STATE [None]
  - GASTRITIS [None]
  - HOMICIDAL IDEATION [None]
  - PREGNANCY [None]
